FAERS Safety Report 24684465 (Version 7)
Quarter: 2025Q2

REPORT INFORMATION
  Report Type: Report from Study
  Country: US (occurrence: US)
  Receive Date: 20241202
  Receipt Date: 20250526
  Transmission Date: 20250717
  Serious: Yes (Hospitalization, Other)
  Sender: SUNOVION
  Company Number: US-SUMITOMO PHARMA SWITZERLAND GMBH-2024SPA005462

PATIENT

DRUGS (2)
  1. ORGOVYX [Suspect]
     Active Substance: RELUGOLIX
     Indication: Prostate cancer
     Dosage: 120 MG, QD
     Route: 048
     Dates: start: 20241116
  2. XTANDI [Suspect]
     Active Substance: ENZALUTAMIDE
     Indication: Product used for unknown indication
     Route: 065

REACTIONS (16)
  - Diplegia [Unknown]
  - Sepsis [Unknown]
  - Cerebrospinal fluid leakage [Unknown]
  - Spinal cord infection [Recovering/Resolving]
  - Spinal cord injury [Unknown]
  - Spinal fusion surgery [Unknown]
  - Back disorder [Unknown]
  - Nerve block [Unknown]
  - Cardioversion [Unknown]
  - Cauda equina syndrome [Unknown]
  - Laboratory test abnormal [Recovering/Resolving]
  - Drug interaction [Unknown]
  - Asthenia [Unknown]
  - Fatigue [Unknown]
  - Hot flush [Unknown]
  - Incorrect dose administered [Unknown]

NARRATIVE: CASE EVENT DATE: 20241224
